FAERS Safety Report 18983386 (Version 2)
Quarter: 2021Q1

REPORT INFORMATION
  Report Type: Spontaneous
  Country: FR (occurrence: FR)
  Receive Date: 20210309
  Receipt Date: 20210329
  Transmission Date: 20210420
  Serious: Yes (Hospitalization, Other)
  Sender: FDA-Public Use
  Company Number: FR-AUROBINDO-AUR-APL-2021-009154

PATIENT
  Age: 22 Year
  Sex: Male
  Weight: 68 kg

DRUGS (2)
  1. ASTRAZENECA COVID?19 VACCINE [Suspect]
     Active Substance: AZD-1222
     Indication: COVID-19 IMMUNISATION
     Dosage: 1 DOSAGE FORM
     Route: 030
     Dates: start: 20210215, end: 20210215
  2. AMOXICILLIN. [Suspect]
     Active Substance: AMOXICILLIN
     Indication: WISDOM TEETH REMOVAL
     Dosage: UNK
     Route: 048
     Dates: start: 20210204, end: 20210211

REACTIONS (1)
  - Immune thrombocytopenia [Recovering/Resolving]

NARRATIVE: CASE EVENT DATE: 20210218
